FAERS Safety Report 7561083-3 (Version None)
Quarter: 2011Q2

REPORT INFORMATION
  Report Type: 
  Country: None (occurrence: None)
  Receive Date: 20110621
  Receipt Date: 20110614
  Transmission Date: 20111010
  Serious: Yes (Death)
  Sender: FDA-Public Use
  Company Number: US-CELGENEUS-163-21880-11062027

PATIENT
  Sex: Male

DRUGS (11)
  1. DIGOXIN [Concomitant]
     Route: 065
  2. BUMETANIDE [Concomitant]
     Route: 065
  3. REVLIMID [Suspect]
     Dosage: 10
     Route: 048
     Dates: start: 20080501
  4. WARFARIN SODIUM [Concomitant]
     Route: 065
  5. ENALAPRIL MALEATE [Concomitant]
     Route: 065
  6. JANUVIA [Concomitant]
     Route: 065
  7. REVLIMID [Suspect]
     Dosage: 15 MILLIGRAM
     Route: 048
     Dates: start: 20110509, end: 20110101
  8. REVLIMID [Suspect]
     Dosage: 15-10MG
     Route: 048
     Dates: start: 20100601
  9. OMEPRAZOLE [Concomitant]
     Route: 065
  10. GLYBURIDE [Concomitant]
     Route: 065
  11. AMLODIPINE BESYLATE [Concomitant]
     Route: 065

REACTIONS (1)
  - DEATH [None]
